FAERS Safety Report 5747291-2 (Version None)
Quarter: 2008Q2

REPORT INFORMATION
  Report Type: 
  Country: None (occurrence: None)
  Receive Date: 20080523
  Receipt Date: 20080512
  Transmission Date: 20081010
  Serious: Yes (Death, Hospitalization)
  Sender: FDA-Public Use
  Company Number: US-JNJFOC-20080404188

PATIENT
  Sex: Female
  Weight: 92.53 kg

DRUGS (5)
  1. REMICADE [Suspect]
     Route: 042
  2. REMICADE [Suspect]
     Route: 042
  3. REMICADE [Suspect]
     Indication: PYODERMA GANGRENOSUM
     Route: 042
  4. PREDNISONE TAB [Suspect]
  5. PREDNISONE TAB [Suspect]
     Indication: PYODERMA GANGRENOSUM
     Dosage: 10 - 60 MG FOR AT LEAST 2 YEARS

REACTIONS (7)
  - BRONCHOPULMONARY ASPERGILLOSIS [None]
  - CHRONIC OBSTRUCTIVE PULMONARY DISEASE [None]
  - CLOSTRIDIUM DIFFICILE COLITIS [None]
  - LUNG NEOPLASM MALIGNANT [None]
  - OROPHARYNGEAL CANDIDIASIS [None]
  - PYODERMA GANGRENOSUM [None]
  - SEPSIS [None]
